FAERS Safety Report 5033738-6 (Version None)
Quarter: 2006Q2

REPORT INFORMATION
  Report Type: 
  Country: None (occurrence: None)
  Receive Date: 20060623
  Receipt Date: 20021018
  Transmission Date: 20061013
  Serious: Yes (Other)
  Sender: FDA-Public Use
  Company Number: PHEH2002US09241

PATIENT
  Age: 70 Year
  Sex: Male

DRUGS (3)
  1. DYAZIDE [Concomitant]
  2. ATORVASTATIN CALCIUM [Concomitant]
  3. ZOMETA [Suspect]
     Indication: WALDENSTROM'S MACROGLOBULINAEMIA
     Dosage: UNK, QMO
     Route: 042
     Dates: start: 20020101

REACTIONS (6)
  - BONE DISORDER [None]
  - BONE PAIN [None]
  - HYPOAESTHESIA [None]
  - NEUROPATHY PERIPHERAL [None]
  - OSTEONECROSIS [None]
  - VISUAL DISTURBANCE [None]
